FAERS Safety Report 19910186 (Version 2)
Quarter: 2022Q1

REPORT INFORMATION
  Report Type: Spontaneous
  Country: DE (occurrence: DE)
  Receive Date: 20211003
  Receipt Date: 20220207
  Transmission Date: 20220423
  Serious: Yes (Death)
  Sender: FDA-Public Use
  Company Number: DE-DCGMA-21189122

PATIENT
  Age: 5 Day
  Sex: Male
  Weight: 2.6 kg

DRUGS (6)
  1. LEVETIRACETAM [Suspect]
     Active Substance: LEVETIRACETAM
     Indication: Neonatal epileptic seizure
     Dosage: UNK
     Route: 042
     Dates: start: 20210105, end: 20210108
  2. PYRIDOXINE HYDROCHLORIDE [Suspect]
     Active Substance: PYRIDOXINE HYDROCHLORIDE
     Indication: Neonatal epileptic seizure
     Dosage: DAILY DOSE: 200 MG MILLGRAM(S) EVERY DAYS 2 SEPARATED DOSES
     Route: 042
     Dates: start: 20210105
  3. PHENOBARBITAL [Suspect]
     Active Substance: PHENOBARBITAL
     Indication: Neonatal epileptic seizure
     Dosage: UNK
     Route: 042
     Dates: start: 20210105, end: 20210108
  4. VALPROATE SODIUM [Concomitant]
     Active Substance: VALPROATE SODIUM
     Indication: Neonatal epileptic seizure
     Route: 042
     Dates: start: 20210108
  5. CHLORAL HYDRATE [Concomitant]
     Active Substance: CHLORAL HYDRATE
     Indication: Sedation
     Route: 042
  6. DIAZEPAM [Concomitant]
     Active Substance: DIAZEPAM
     Indication: Sedation
     Route: 042

REACTIONS (2)
  - Necrotising enterocolitis neonatal [Fatal]
  - Peritonitis [Fatal]

NARRATIVE: CASE EVENT DATE: 20210109
